FAERS Safety Report 10482403 (Version 1)
Quarter: 2014Q3

REPORT INFORMATION
  Report Type: Spontaneous
  Country: JP (occurrence: JP)
  Receive Date: 20140929
  Receipt Date: 20140929
  Transmission Date: 20150326
  Serious: Yes (Death, Hospitalization)
  Sender: FDA-Public Use
  Company Number: JP-NAPPMUNDI-GBR-2014-0022285

PATIENT
  Age: 51 Year
  Sex: Male
  Weight: 65 kg

DRUGS (9)
  1. AMLODIN [Concomitant]
     Active Substance: AMLODIPINE BESYLATE
     Indication: HYPERTENSION
     Dosage: UNK
     Dates: start: 20140207
  2. MORPHINE SULFATE. [Concomitant]
     Active Substance: MORPHINE SULFATE
     Dosage: UNK
     Dates: start: 20140320
  3. AXITINIB [Suspect]
     Active Substance: AXITINIB
     Indication: METASTATIC RENAL CELL CARCINOMA
     Dosage: 5 MG, BID
     Route: 048
     Dates: start: 20140207, end: 20140211
  4. MEDICON                            /00048102/ [Concomitant]
     Indication: METASTATIC RENAL CELL CARCINOMA
     Dosage: UNK
     Dates: start: 20140130
  5. OXYCODONE HCL IMMEDIATE RELEASE TABLETS [Suspect]
     Active Substance: OXYCODONE HYDROCHLORIDE
     Indication: CANCER PAIN
     Dosage: 2.5 MG, BID
     Route: 048
     Dates: start: 20140131, end: 20140320
  6. CELECOX [Concomitant]
     Active Substance: CELECOXIB
     Indication: METASTATIC RENAL CELL CARCINOMA
     Dosage: UNK
     Dates: start: 20140203
  7. OXYCODONE HCL PR TABLET 5 MG [Suspect]
     Active Substance: OXYCODONE HYDROCHLORIDE
     Indication: CANCER PAIN
     Dosage: 5 MG, BID
     Route: 048
     Dates: start: 20140131, end: 20140320
  8. MAG-LAX [Concomitant]
     Active Substance: MAGNESIUM HYDROXIDE\PARAFFIN
     Indication: CONSTIPATION
     Dosage: UNK
     Dates: start: 20140207
  9. CALONAL [Concomitant]
     Active Substance: ACETAMINOPHEN
     Indication: METASTATIC RENAL CELL CARCINOMA
     Dosage: UNK
     Dates: start: 20140203

REACTIONS (4)
  - Cholestasis [Recovering/Resolving]
  - Jaundice [Unknown]
  - Malignant neoplasm progression [Fatal]
  - Faeces pale [Unknown]

NARRATIVE: CASE EVENT DATE: 20140211
